FAERS Safety Report 5701402-3 (Version None)
Quarter: 2008Q2

REPORT INFORMATION
  Report Type: 
  Country: None (occurrence: None)
  Receive Date: 20080408
  Receipt Date: 20080326
  Transmission Date: 20081010
  Serious: Yes (Hospitalization)
  Sender: FDA-Public Use
  Company Number: 232935J08USA

PATIENT
  Age: 48 Year
  Sex: Male
  Weight: 127.0072 kg

DRUGS (2)
  1. REBIF [Suspect]
     Indication: MULTIPLE SCLEROSIS
     Dosage: 44 MCG, 3 IN 1 WEEKS, SUBCUTANEOUS
     Route: 058
     Dates: start: 20071212
  2. UNSPECIFIED HEART MEDICATIONS (ANTIHYPERTENSIVES AND DIURETICS IN COMB [Concomitant]

REACTIONS (4)
  - CORONARY ARTERY DISEASE [None]
  - DIZZINESS [None]
  - HYPERTENSION [None]
  - TREATMENT NONCOMPLIANCE [None]
